FAERS Safety Report 10163956 (Version 1)
Quarter: 2014Q2

REPORT INFORMATION
  Report Type: Spontaneous
  Country: US (occurrence: US)
  Receive Date: 20140510
  Receipt Date: 20140510
  Transmission Date: 20141212
  Serious: No
  Sender: FDA-Public Use
  Company Number: US-BRISTOL-MYERS SQUIBB COMPANY-19704337

PATIENT
  Age: 74 Year
  Sex: Male
  Weight: 79.36 kg

DRUGS (9)
  1. BYETTA [Suspect]
     Indication: TYPE 2 DIABETES MELLITUS
     Dates: start: 2011
  2. IBUPROFEN [Concomitant]
     Indication: HEADACHE
  3. CITALOPRAM HYDROBROMIDE [Concomitant]
  4. HYDROXYCHLOROQUINE SULFATE [Concomitant]
  5. GLIMEPIRIDE [Concomitant]
  6. OMEPRAZOLE [Concomitant]
  7. ASPIRIN [Concomitant]
  8. TRAZODONE HCL [Concomitant]
     Indication: SLEEP DISORDER
     Dosage: 1DF:1 CAPS
  9. HYDROCODONE [Concomitant]
     Indication: BACK PAIN

REACTIONS (2)
  - Headache [Recovering/Resolving]
  - Weight decreased [Unknown]
